FAERS Safety Report 21661708 (Version 3)
Quarter: 2023Q4

REPORT INFORMATION
  Report Type: Spontaneous
  Country: CA (occurrence: None)
  Receive Date: 20221130
  Receipt Date: 20231201
  Transmission Date: 20240110
  Serious: Yes (Death, Other)
  Sender: FDA-Public Use
  Company Number: CA-ROCHE-3225889

PATIENT

DRUGS (1)
  1. BEVACIZUMAB [Suspect]
     Active Substance: BEVACIZUMAB
     Indication: Cerebral radiation injury
     Route: 065

REACTIONS (4)
  - Deep vein thrombosis [Unknown]
  - Ischaemic stroke [Unknown]
  - Pulmonary embolism [Unknown]
  - Sudden death [Fatal]
